FAERS Safety Report 9197641 (Version 2)
Quarter: 2014Q1

REPORT INFORMATION
  Report Type: Spontaneous
  Country: US (occurrence: US)
  Receive Date: 20130328
  Receipt Date: 20140114
  Transmission Date: 20141002
  Serious: Yes (Other)
  Sender: FDA-Public Use
  Company Number: PHEH2013US007055

PATIENT
  Sex: Female

DRUGS (3)
  1. DIOVAN [Suspect]
     Indication: HYPERTENSION
  2. ACEBUTOLOL [Concomitant]
  3. ISRADIPINE [Concomitant]

REACTIONS (1)
  - Hearing impaired [Unknown]
